FAERS Safety Report 25844718 (Version 1)
Quarter: 2025Q3

REPORT INFORMATION
  Report Type: Spontaneous
  Country: US (occurrence: US)
  Receive Date: 20250925
  Receipt Date: 20250925
  Transmission Date: 20251021
  Serious: No
  Sender: SUNOVION
  Company Number: US-SMPA-2025SPA011974

PATIENT
  Age: 76 Year
  Sex: Male

DRUGS (28)
  1. ORGOVYX [Suspect]
     Active Substance: RELUGOLIX
     Indication: Prostate cancer
     Route: 048
  2. ACETAMINOPHEN [Concomitant]
     Active Substance: ACETAMINOPHEN
  3. ALLOPURINOL [Concomitant]
     Active Substance: ALLOPURINOL
  4. AMBIEN [Concomitant]
     Active Substance: ZOLPIDEM TARTRATE
  5. ASPIRIN [Concomitant]
     Active Substance: ASPIRIN
  6. CALCIUM [Concomitant]
     Active Substance: CALCIUM
  7. CARVEDILOL [Concomitant]
     Active Substance: CARVEDILOL
  8. CELEXA [Concomitant]
     Active Substance: CITALOPRAM HYDROBROMIDE
  9. Dapaglicin [Concomitant]
  10. EZETIMIBE [Concomitant]
     Active Substance: EZETIMIBE
  11. FARXIGA [Concomitant]
     Active Substance: DAPAGLIFLOZIN PROPANEDIOL
  12. FINASTERIDE [Concomitant]
     Active Substance: FINASTERIDE
  13. FLOMAX [Concomitant]
     Active Substance: TAMSULOSIN HYDROCHLORIDE
  14. ICOSAPENT [Concomitant]
     Active Substance: ICOSAPENT
  15. KENALOG [Concomitant]
     Active Substance: TRIAMCINOLONE ACETONIDE
  16. LASIX [Concomitant]
     Active Substance: FUROSEMIDE
  17. LIPITOR [Concomitant]
     Active Substance: ATORVASTATIN CALCIUM
  18. METFORMIN [Concomitant]
     Active Substance: METFORMIN HYDROCHLORIDE
  19. METOPROLOL [Concomitant]
     Active Substance: METOPROLOL
  20. VITAMINS [Concomitant]
     Active Substance: VITAMINS
  21. OXYBUTYNIN [Concomitant]
     Active Substance: OXYBUTYNIN
  22. PREDNISONE [Concomitant]
     Active Substance: PREDNISONE
  23. PROSCAR [Concomitant]
     Active Substance: FINASTERIDE
  24. PROTONIX [Concomitant]
     Active Substance: PANTOPRAZOLE SODIUM
  25. TOLTERODINE [Concomitant]
     Active Substance: TOLTERODINE
  26. VITAMIN D [Concomitant]
     Active Substance: VITAMIN D NOS
  27. WELLBUTRIN [Concomitant]
     Active Substance: BUPROPION HYDROCHLORIDE
  28. ZYLOPRIM [Concomitant]
     Active Substance: ALLOPURINOL

REACTIONS (3)
  - Diarrhoea [Unknown]
  - Nausea [Unknown]
  - Incorrect dose administered [Recovered/Resolved]
